FAERS Safety Report 15133037 (Version 1)
Quarter: 2018Q3

REPORT INFORMATION
  Report Type: Spontaneous
  Country: DE (occurrence: DE)
  Receive Date: 20180712
  Receipt Date: 20180712
  Transmission Date: 20181010
  Serious: Yes (Death, Other)
  Sender: FDA-Public Use
  Company Number: DE-TEVA-2018-DE-922683

PATIENT
  Age: 75 Year
  Sex: Female
  Weight: 75 kg

DRUGS (8)
  1. XELEVIA [Concomitant]
     Active Substance: SITAGLIPTIN PHOSPHATE
     Route: 065
  2. XARELTO [Concomitant]
     Active Substance: RIVAROXABAN
     Route: 065
  3. ATORVASTATIN [Concomitant]
     Active Substance: ATORVASTATIN
     Route: 065
  4. DIGITOXIN [Concomitant]
     Active Substance: DIGITOXIN
     Route: 065
  5. MOXONIDINE [Concomitant]
     Active Substance: MOXONIDINE
     Route: 065
  6. BISOPROLOL [Concomitant]
     Active Substance: BISOPROLOL
     Route: 065
  7. TORASEMID [Concomitant]
     Active Substance: TORSEMIDE
     Route: 065
  8. METFORMIN [Suspect]
     Active Substance: METFORMIN HYDROCHLORIDE
     Indication: TYPE 2 DIABETES MELLITUS
     Dosage: 2550 MILLIGRAM DAILY;
     Route: 048
     Dates: start: 20160101, end: 20180516

REACTIONS (1)
  - Lactic acidosis [Fatal]

NARRATIVE: CASE EVENT DATE: 20180516
